FAERS Safety Report 16914735 (Version 1)
Quarter: 2019Q4

REPORT INFORMATION
  Report Type: Spontaneous
  Country: CN (occurrence: CN)
  Receive Date: 20191014
  Receipt Date: 20191014
  Transmission Date: 20200122
  Serious: Yes (Other)
  Sender: FDA-Public Use
  Company Number: CN-PFIZER INC-2019439350

PATIENT
  Age: 45 Year
  Sex: Female
  Weight: 54 kg

DRUGS (1)
  1. METHYLPREDNISOLONE SODIUM SUCCINATE. [Suspect]
     Active Substance: METHYLPREDNISOLONE SODIUM SUCCINATE
     Indication: HYPERTHYROIDISM
     Dosage: 1000 MG, 1X/DAY
     Route: 042
     Dates: start: 20190925, end: 20190925

REACTIONS (7)
  - Hypersensitivity [Recovering/Resolving]
  - Product use in unapproved indication [Unknown]
  - Oedema [Recovering/Resolving]
  - Pruritus [Recovering/Resolving]
  - Face oedema [Recovering/Resolving]
  - Hypoaesthesia oral [Recovering/Resolving]
  - Off label use [Unknown]

NARRATIVE: CASE EVENT DATE: 20190925
